FAERS Safety Report 7747598-3 (Version None)
Quarter: 2011Q3

REPORT INFORMATION
  Report Type: 
  Country: None (occurrence: None)
  Receive Date: 20110913
  Receipt Date: 20110831
  Transmission Date: 20111222
  Serious: No
  Sender: FDA-Public Use
  Company Number: US-B.I. PHARMACEUTICALS,INC./RIDGEFIELD-2011-BP-21296BP

PATIENT
  Sex: Male

DRUGS (11)
  1. OXYCODONE HCL [Concomitant]
     Indication: BACK PAIN
  2. SERTRALINE HYDROCHLORIDE [Concomitant]
     Indication: ANXIETY
     Dosage: 100 MG
  3. OXYCONTIN [Concomitant]
     Indication: BACK PAIN
  4. PANTOPRAZOLE [Concomitant]
     Indication: ABDOMINAL DISCOMFORT
     Dosage: 40 MG
  5. PRADAXA [Suspect]
     Indication: ATRIAL FIBRILLATION
     Dosage: 300 MG
     Route: 048
     Dates: start: 20110801
  6. FLUTICASONE PROPIONATE [Concomitant]
     Indication: HYPERSENSITIVITY
     Dosage: 50 MCG
  7. DIAZEPAM [Concomitant]
     Indication: BACK PAIN
  8. KLONOPIN [Concomitant]
     Indication: ABDOMINAL DISCOMFORT
     Dosage: 1.5 MG
  9. CO Q10 [Concomitant]
     Indication: ROUTINE HEALTH MAINTENANCE
  10. TOPROL-XL [Concomitant]
     Indication: ATRIAL FIBRILLATION
     Dosage: 50 MG
  11. ANDROGEL [Concomitant]
     Indication: BLOOD TESTOSTERONE DECREASED

REACTIONS (1)
  - LETHARGY [None]
